FAERS Safety Report 7821869-4 (Version None)
Quarter: 2011Q4

REPORT INFORMATION
  Report Type: 
  Country: None (occurrence: None)
  Receive Date: 20111018
  Receipt Date: 20100910
  Transmission Date: 20120403
  Serious: No
  Sender: FDA-Public Use
  Company Number: US-ASTRAZENECA-2010SE42530

PATIENT
  Age: 74 Year
  Sex: Female
  Weight: 69.9 kg

DRUGS (4)
  1. CITALOPRAM [Concomitant]
  2. LEVOXYL [Concomitant]
  3. SYMBICORT [Suspect]
     Dosage: 160/4.5 MCG, 2 PUFFS BID
     Route: 055
  4. ESTROGEN PATCH [Concomitant]

REACTIONS (2)
  - THROAT IRRITATION [None]
  - INAPPROPRIATE SCHEDULE OF DRUG ADMINISTRATION [None]
